FAERS Safety Report 24813474 (Version 1)
Quarter: 2025Q1

REPORT INFORMATION
  Report Type: Other
  Country: IT (occurrence: IT)
  Receive Date: 20250107
  Receipt Date: 20250107
  Transmission Date: 20250409
  Serious: Yes (Other)
  Sender: Steriscience PTE
  Company Number: IT-AUROBINDO-AUR-APL-2024-062693

PATIENT
  Age: 73 Year
  Sex: Male

DRUGS (1)
  1. MEROPENEM [Suspect]
     Active Substance: MEROPENEM
     Indication: Urinary tract infection
     Route: 065

REACTIONS (1)
  - SJS-TEN overlap [Unknown]
